FAERS Safety Report 17750500 (Version 4)
Quarter: 2020Q4

REPORT INFORMATION
  Report Type: Spontaneous
  Country: US (occurrence: US)
  Receive Date: 20200506
  Receipt Date: 20201008
  Transmission Date: 20210113
  Serious: Yes (Other)
  Sender: FDA-Public Use
  Company Number: US-LEXICON PHARMACEUTICALS, INC-20-1606-00335

PATIENT
  Age: 75 Year
  Sex: Female

DRUGS (4)
  1. XERMELO [Suspect]
     Active Substance: TELOTRISTAT ETHYL
     Indication: NEUROENDOCRINE TUMOUR
     Dates: start: 20200331
  2. CT CONTRAST [Suspect]
     Active Substance: UNSPECIFIED INGREDIENT
  3. XERMELO [Suspect]
     Active Substance: TELOTRISTAT ETHYL
     Dates: end: 2020
  4. SANDOSTATIN [Concomitant]
     Active Substance: OCTREOTIDE ACETATE

REACTIONS (6)
  - Abdominal pain upper [Not Recovered/Not Resolved]
  - Product dose omission issue [Recovered/Resolved]
  - Diarrhoea [Unknown]
  - Disease progression [Not Recovered/Not Resolved]
  - Malaise [Not Recovered/Not Resolved]
  - Treatment noncompliance [Recovered/Resolved]
